FAERS Safety Report 10523617 (Version 1)
Quarter: 2014Q4

REPORT INFORMATION
  Report Type: Other
  Country: TW (occurrence: TW)
  Receive Date: 20141017
  Receipt Date: 20141017
  Transmission Date: 20150528
  Serious: No
  Sender: FDA-Public Use
  Company Number: TW-LUPIN PHARMACEUTICALS INC.-2014-01606

PATIENT
  Age: 38 Year
  Sex: Male
  Weight: 170 kg

DRUGS (2)
  1. EXENATIDE [Suspect]
     Active Substance: EXENATIDE
     Indication: WEIGHT DECREASED
     Route: 058
  2. METFORMIN [Suspect]
     Active Substance: METFORMIN HYDROCHLORIDE
     Indication: WEIGHT DECREASED
     Route: 065

REACTIONS (1)
  - Off label use [Unknown]
